FAERS Safety Report 8271456-1 (Version None)
Quarter: 2012Q2

REPORT INFORMATION
  Report Type: 
  Country: None (occurrence: None)
  Receive Date: 20120410
  Receipt Date: 20120402
  Transmission Date: 20120825
  Serious: Yes (Other)
  Sender: FDA-Public Use
  Company Number: JP-B.I. PHARMACEUTICALS,INC./RIDGEFIELD-2012-BP-06099NB

PATIENT
  Age: 58 Year
  Sex: Female

DRUGS (1)
  1. MOBIC [Suspect]
     Dosage: 10 MG
     Route: 065
     Dates: start: 20100801, end: 20100801

REACTIONS (3)
  - LEUKOPENIA [None]
  - DRUG ERUPTION [None]
  - THROMBOCYTOPENIA [None]
